FAERS Safety Report 21327892 (Version 1)
Quarter: 2022Q3

REPORT INFORMATION
  Report Type: Spontaneous
  Country: DE (occurrence: DE)
  Receive Date: 20220913
  Receipt Date: 20220913
  Transmission Date: 20221027
  Serious: Yes (Other)
  Sender: FDA-Public Use
  Company Number: DE-DEXPHARM-20221387

PATIENT
  Age: 92 Year
  Sex: Female

DRUGS (2)
  1. SIMVASTATIN [Suspect]
     Active Substance: SIMVASTATIN
     Indication: Mitral valve disease
     Dosage: UNKNOWN
     Route: 065
  2. SIMVASTATIN [Suspect]
     Active Substance: SIMVASTATIN
     Indication: Aortic valve disease

REACTIONS (2)
  - Metastases to lymph nodes [Recovered/Resolved]
  - Neuroendocrine carcinoma of the skin [Recovered/Resolved]
